FAERS Safety Report 23267420 (Version 1)
Quarter: 2023Q4

REPORT INFORMATION
  Report Type: Spontaneous
  Country: US (occurrence: None)
  Receive Date: 20231205
  Receipt Date: 20231205
  Transmission Date: 20240110
  Serious: Yes (Life-Threatening, Hospitalization, Disabling, Other)
  Sender: FDA-Public Use
  Company Number: None

PATIENT
  Age: 24 Year
  Sex: Female
  Weight: 86 kg

DRUGS (2)
  1. LANOXIN [Suspect]
     Active Substance: DIGOXIN
     Dosage: OTHER FREQUENCY : ONCE;?
     Route: 037
     Dates: start: 20231130, end: 20231130
  2. BUPIVACAINE [Suspect]
     Active Substance: BUPIVACAINE

REACTIONS (9)
  - Caesarean section [None]
  - Wrong product administered [None]
  - Apraxia [None]
  - Dyspnoea [None]
  - Seizure [None]
  - Pupillary reflex impaired [None]
  - Deafness [None]
  - Amnesia [None]
  - Product packaging confusion [None]

NARRATIVE: CASE EVENT DATE: 20231130
